FAERS Safety Report 15053339 (Version 6)
Quarter: 2018Q3

REPORT INFORMATION
  Report Type: Report from Study
  Country: CA (occurrence: CA)
  Receive Date: 20180622
  Receipt Date: 20180926
  Transmission Date: 20181010
  Serious: Yes (Hospitalization, Other)
  Sender: FDA-Public Use
  Company Number: CA-TAKEDA-2017TUS023570

PATIENT
  Age: 72 Year
  Sex: Male

DRUGS (18)
  1. LOTRIDERM [Concomitant]
     Active Substance: BETAMETHASONE DIPROPIONATE\CLOTRIMAZOLE
     Dosage: UNK
  2. METHOTREXATE. [Suspect]
     Active Substance: METHOTREXATE
     Indication: PRODUCT USED FOR UNKNOWN INDICATION
     Dosage: UNK
     Route: 065
     Dates: end: 201804
  3. LOMOTIL [Concomitant]
     Active Substance: ATROPINE SULFATE\DIPHENOXYLATE HYDROCHLORIDE
     Dosage: UNK
  4. ECTOSONE [Concomitant]
     Dosage: UNK
  5. DERMALAC [Concomitant]
     Dosage: UNK
  6. SPIRULINA                          /01514001/ [Concomitant]
     Active Substance: SPIRULINA
     Dosage: UNK
  7. GLUCOSAMINE SULFATE [Concomitant]
     Active Substance: GLUCOSAMINE SULFATE
     Dosage: UNK
  8. VSL [Concomitant]
     Dosage: UNK
  9. VITAMIN D [Concomitant]
     Active Substance: CHOLECALCIFEROL
     Dosage: UNK
  10. FUCIDIN [Concomitant]
     Active Substance: FUSIDIC ACID
     Dosage: UNK
  11. ENTOCORT [Concomitant]
     Active Substance: BUDESONIDE
     Dosage: UNK
  12. LUMIGAN [Concomitant]
     Active Substance: BIMATOPROST
     Dosage: UNK
  13. CELADRIN [Concomitant]
     Active Substance: MENTHOL
     Dosage: UNK
  14. VEDOLIZUMAB [Suspect]
     Active Substance: VEDOLIZUMAB
     Indication: CROHN^S DISEASE
     Dosage: 300 MG, UNK
     Route: 042
     Dates: start: 20170801, end: 20180906
  15. CHONDROITIN [Concomitant]
     Active Substance: CHONDROITIN
     Dosage: UNK
  16. LACTULOSE. [Concomitant]
     Active Substance: LACTULOSE
     Dosage: UNK
  17. TIMOPTIC [Concomitant]
     Active Substance: TIMOLOL MALEATE
     Dosage: UNK
  18. ASA [Concomitant]
     Active Substance: ASPIRIN
     Dosage: UNK

REACTIONS (8)
  - Influenza [Recovered/Resolved]
  - Drug ineffective [Unknown]
  - Macular fibrosis [Unknown]
  - Lethargy [Recovered/Resolved]
  - Influenza like illness [Not Recovered/Not Resolved]
  - Crohn^s disease [Unknown]
  - Pyrexia [Unknown]
  - Atypical pneumonia [Recovered/Resolved]

NARRATIVE: CASE EVENT DATE: 20170919
